FAERS Safety Report 15061740 (Version 1)
Quarter: 2018Q2

REPORT INFORMATION
  Report Type: Spontaneous
  Country: US (occurrence: US)
  Receive Date: 20180625
  Receipt Date: 20180625
  Transmission Date: 20180711
  Serious: No
  Sender: FDA-Public Use
  Company Number: US-PFIZER INC-2018252675

PATIENT
  Age: 5 Year
  Sex: Male
  Weight: 24.94 kg

DRUGS (3)
  1. CHILDRENS ADVIL [Suspect]
     Active Substance: IBUPROFEN
     Indication: PYREXIA
     Dosage: USED THE DOSE INSTRUCTIONS ON THE BOX
     Route: 048
     Dates: end: 2018
  2. KEFLEX [Suspect]
     Active Substance: CEPHALEXIN
  3. CHILDRENS ADVIL [Suspect]
     Active Substance: IBUPROFEN
     Indication: PYREXIA
     Dosage: 2 TEASPOON BY MOUTH TOOK ONCE
     Route: 048
     Dates: end: 2018

REACTIONS (3)
  - Drug hypersensitivity [Recovered/Resolved]
  - Cough [Recovered/Resolved]
  - Eye swelling [Recovered/Resolved]

NARRATIVE: CASE EVENT DATE: 201801
